FAERS Safety Report 17424967 (Version 2)
Quarter: 2020Q2

REPORT INFORMATION
  Report Type: Spontaneous
  Country: PT (occurrence: PT)
  Receive Date: 20200217
  Receipt Date: 20200427
  Transmission Date: 20200713
  Serious: Yes (Other)
  Sender: FDA-Public Use
  Company Number: PT-009507513-2002PRT003859

PATIENT
  Age: 61 Year
  Sex: Male
  Weight: 75 kg

DRUGS (5)
  1. OMEPRAZOLE. [Concomitant]
     Active Substance: OMEPRAZOLE
     Dosage: 20 MILLIGRAM, QD, FORMULATION: GASTRO-RESISTANT CAPSULE
     Route: 048
  2. OLMESARTAN MEDOXOMIL. [Concomitant]
     Active Substance: OLMESARTAN MEDOXOMIL
     Dosage: 20 MILLIGRAM, QD, FORMULATION: FILM-COATED TABLET
     Route: 048
  3. KEYTRUDA [Suspect]
     Active Substance: PEMBROLIZUMAB
     Indication: NON-SMALL CELL LUNG CANCER
     Dosage: 200 MILLIGRAM, CYCLICAL (200 MG EVERY 21 DAYS), FORMULATION: CONCENTRATE FOR SOLUTION FOR INFUSION
     Route: 042
     Dates: start: 20190103
  4. LEVETIRACETAM. [Concomitant]
     Active Substance: LEVETIRACETAM
     Dosage: DOSE: 1000 MILLIGRAM, QD
     Route: 048
  5. AVAMYS [Concomitant]
     Active Substance: FLUTICASONE FUROATE
     Dosage: UNK, FORMULATION: SUSPENSION FOR NASAL SPRAY
     Route: 045

REACTIONS (3)
  - Drug eruption [Recovered/Resolved]
  - Dry skin [Recovered/Resolved]
  - Skin lesion [Recovered/Resolved]

NARRATIVE: CASE EVENT DATE: 20190911
